FAERS Safety Report 13739674 (Version 1)
Quarter: 2017Q3

REPORT INFORMATION
  Report Type: Spontaneous
  Country: US (occurrence: US)
  Receive Date: 20170711
  Receipt Date: 20170711
  Transmission Date: 20171127
  Serious: No
  Sender: FDA-Public Use
  Company Number: US-GLAXOSMITHKLINE-US2017105548

PATIENT
  Sex: Female

DRUGS (17)
  1. COUMADIN [Concomitant]
     Active Substance: WARFARIN SODIUM
  2. LIPITOR [Concomitant]
     Active Substance: ATORVASTATIN CALCIUM
  3. PEPCID [Concomitant]
     Active Substance: FAMOTIDINE
  4. CARDIZEM [Concomitant]
     Active Substance: DILTIAZEM HYDROCHLORIDE
  5. DILANTIN [Concomitant]
     Active Substance: PHENYTOIN
  6. SYNTHROID [Concomitant]
     Active Substance: LEVOTHYROXINE SODIUM
  7. ATIVAN [Concomitant]
     Active Substance: LORAZEPAM
  8. LOPRESSOR [Concomitant]
     Active Substance: METOPROLOL TARTRATE
  9. DIGOXIN. [Concomitant]
     Active Substance: DIGOXIN
  10. ALLOPURINOL. [Concomitant]
     Active Substance: ALLOPURINOL
  11. ADVAIR HFA [Suspect]
     Active Substance: FLUTICASONE PROPIONATE\SALMETEROL XINAFOATE
     Indication: CHRONIC OBSTRUCTIVE PULMONARY DISEASE
     Dosage: 2 PUFF(S), BID
     Route: 055
  12. MEGARED [Concomitant]
  13. PAXIL [Concomitant]
     Active Substance: PAROXETINE HYDROCHLORIDE
  14. ASPIRIN. [Concomitant]
     Active Substance: ASPIRIN
  15. LASIX [Concomitant]
     Active Substance: FUROSEMIDE
  16. CALCIUM [Concomitant]
     Active Substance: CALCIUM
  17. FERRICON [Concomitant]

REACTIONS (1)
  - Cough [Unknown]
